FAERS Safety Report 4989042-5 (Version None)
Quarter: 2006Q1

REPORT INFORMATION
  Report Type: 
  Country: None (occurrence: None)
  Receive Date: 20060314
  Receipt Date: 20051201
  Transmission Date: 20060701
  Serious: Yes (Other)
  Sender: FDA-Public Use
  Company Number: 200514656BCC

PATIENT
  Age: 62 Year
  Sex: Male
  Weight: 80.7403 kg

DRUGS (3)
  1. ALEVE [Suspect]
     Dosage: 440 MG, IRR, ORAL
     Route: 048
     Dates: start: 20051101, end: 20051118
  2. PENICILLIN [Suspect]
     Dosage: ORAL
     Route: 048
     Dates: start: 20051101, end: 20051118
  3. ANESTHESIA (ANESTHETICS) [Suspect]
     Indication: ORAL SURGERY

REACTIONS (6)
  - ASTHENIA [None]
  - ERYTHEMA [None]
  - HYPERSENSITIVITY [None]
  - INFLUENZA LIKE ILLNESS [None]
  - PRURITUS [None]
  - SWELLING [None]
